FAERS Safety Report 8611598-1 (Version None)
Quarter: 2012Q3

REPORT INFORMATION
  Report Type: 
  Country: None (occurrence: None)
  Receive Date: 20120822
  Receipt Date: 20120821
  Transmission Date: 20120928
  Serious: Yes (Other)
  Sender: FDA-Public Use
  Company Number: PHFR2012GB004266

PATIENT
  Sex: Male

DRUGS (3)
  1. SERTRALINE HYDROCHLORIDE [Concomitant]
     Indication: ANHEDONIA
     Dosage: 50 MG, UNK
     Route: 048
     Dates: start: 20120703
  2. CLOZARIL [Suspect]
     Dosage: 112 MG, (NIGHT)
     Route: 048
  3. CLOZARIL [Suspect]
     Indication: SCHIZOPHRENIA
     Dosage: 125 MG, QD
     Route: 048
     Dates: start: 20120720

REACTIONS (4)
  - C-REACTIVE PROTEIN INCREASED [None]
  - BLOOD CREATINE PHOSPHOKINASE INCREASED [None]
  - TACHYCARDIA [None]
  - CARDIAC ENZYMES INCREASED [None]
